FAERS Safety Report 21102997 (Version 1)
Quarter: 2022Q3

REPORT INFORMATION
  Report Type: Spontaneous
  Country: NL (occurrence: NL)
  Receive Date: 20220720
  Receipt Date: 20220720
  Transmission Date: 20221027
  Serious: Yes (Other)
  Sender: FDA-Public Use
  Company Number: None

PATIENT
  Age: 72 Year
  Sex: Male
  Weight: 74 kg

DRUGS (5)
  1. FINASTERIDE [Suspect]
     Active Substance: FINASTERIDE
     Indication: Haematuria
     Dosage: 1D1T , BRAND NAME NOT SPECIFIED , UNIT DOSE AND STRENGTH : 5 MG , FREQUENCY TIME : 1 DAY , DURATION
     Dates: start: 20220523, end: 20220610
  2. METOPROLOL SUCCINATE [Concomitant]
     Active Substance: METOPROLOL SUCCINATE
     Indication: Product used for unknown indication
     Dosage: 50 MG (MILLIGRAM) , METOPROLOL TABLET MGA  50MG (SUCCINAAT) / BRAND NAME NOT SPECIFIED , THERAPY ST
  3. ATORVASTATIN [Concomitant]
     Active Substance: ATORVASTATIN
     Indication: Product used for unknown indication
     Dosage: 10 MG (MILLIGRAM) , BRAND NAME NOT SPECIFIED , THERAPY START DATE AND END DATE : ASKU , STRENGTH : 1
  4. OMEPRAZOLE [Concomitant]
     Active Substance: OMEPRAZOLE
     Indication: Product used for unknown indication
     Dosage: 20 MG (MILLIGRAM) , OMEPRAZOL TABLET MSR 20MG / BRAND NAME NOT SPECIFIED , THERAPY START DATE AND E
  5. TAMSULOSIN HYDROCHLORIDE [Concomitant]
     Active Substance: TAMSULOSIN HYDROCHLORIDE
     Indication: Product used for unknown indication
     Dosage: MODIFIED RELEASE CAPSULE , 0.4 MG (MILLIGRAM) , TAMSULOSINE CAPSULE MGA 0,4MG / BRAND NAME NOT SPECI

REACTIONS (2)
  - Epididymitis [Recovering/Resolving]
  - Scrotal pain [Recovering/Resolving]

NARRATIVE: CASE EVENT DATE: 20220530
